FAERS Safety Report 13484987 (Version 2)
Quarter: 2017Q2

REPORT INFORMATION
  Report Type: Spontaneous
  Country: PL (occurrence: PL)
  Receive Date: 20170426
  Receipt Date: 20170512
  Transmission Date: 20170830
  Serious: Yes (Death, Hospitalization, Other)
  Sender: FDA-Public Use
  Company Number: PL-009507513-1704POL009194

PATIENT
  Age: 14 Year
  Sex: Female

DRUGS (6)
  1. CASPOFUNGIN ACETATE. [Suspect]
     Active Substance: CASPOFUNGIN ACETATE
     Indication: FUNGAL INFECTION
     Dosage: UNK
     Route: 042
  2. AMPHOTERICIN B (+) L-(ALPHA)-DIMYRISTOYLPHOSPHATIDYLCHOLINE (+) L-(ALP [Suspect]
     Active Substance: AMPHOTERICIN B\DIMYRISTOYLPHOSPHATIDYLCHOLINE, DL-\DIMYRISTOYLPHOSPHATIDYLGLYCEROL, DL-
     Dosage: 4 TIMES DAILY, USING A SOLUTION CONTAINING 6 MG OF AMPHOTERICIN B IN 25 ML OF SALINE; LOCAL THERAPY
  3. POSACONAZOLE [Suspect]
     Active Substance: POSACONAZOLE
     Indication: ANTIFUNGAL PROPHYLAXIS
     Route: 048
  4. AMPHOTERICIN B (+) L-(ALPHA)-DIMYRISTOYLPHOSPHATIDYLCHOLINE (+) L-(ALP [Suspect]
     Active Substance: AMPHOTERICIN B\DIMYRISTOYLPHOSPHATIDYLCHOLINE, DL-\DIMYRISTOYLPHOSPHATIDYLGLYCEROL, DL-
     Indication: FUNGAL INFECTION
     Dosage: UNK
     Route: 042
  5. AMPHOTERICIN B (+) L-(ALPHA)-DIMYRISTOYLPHOSPHATIDYLCHOLINE (+) L-(ALP [Suspect]
     Active Substance: AMPHOTERICIN B\DIMYRISTOYLPHOSPHATIDYLCHOLINE, DL-\DIMYRISTOYLPHOSPHATIDYLGLYCEROL, DL-
     Dosage: A SOLUTION OF AMPHOTERICIN B LIPID COMPLEX, CONTAINING 1 MG OF AMPHOTERICIN B/2 L OF SALINE
  6. POSACONAZOLE [Suspect]
     Active Substance: POSACONAZOLE
     Indication: FUNGAL INFECTION

REACTIONS (2)
  - Systemic candida [Fatal]
  - Drug ineffective [Fatal]
